FAERS Safety Report 26185681 (Version 1)
Quarter: 2025Q4

REPORT INFORMATION
  Report Type: Spontaneous
  Country: US (occurrence: US)
  Receive Date: 20251222
  Receipt Date: 20251222
  Transmission Date: 20260118
  Serious: No
  Sender: USAntibiotics
  Company Number: US-USAN-USUSAN2025SPO000033

PATIENT

DRUGS (21)
  1. AUGMENTIN [Suspect]
     Active Substance: AMOXICILLIN\CLAVULANATE POTASSIUM
  2. ZITHROMAX [Concomitant]
     Active Substance: AZITHROMYCIN DIHYDRATE
  3. TESSALON [Concomitant]
     Active Substance: BENZONATATE
  4. VITAMIN D3 [Concomitant]
     Active Substance: CHOLECALCIFEROL
  5. PLAVIX [Concomitant]
     Active Substance: CLOPIDOGREL BISULFATE
  6. BENADRYL [Concomitant]
     Active Substance: DIPHENHYDRAMINE HYDROCHLORIDE
  7. ZETIA [Concomitant]
     Active Substance: EZETIMIBE
  8. NEURONTIN [Concomitant]
     Active Substance: GABAPENTIN
  9. dialaudid [Concomitant]
  10. LINZESS [Concomitant]
     Active Substance: LINACLOTIDE
  11. MAGNESIUM OXIDE [Concomitant]
     Active Substance: MAGNESIUM OXIDE
  12. TOPROL XL [Concomitant]
     Active Substance: METOPROLOL SUCCINATE
  13. LOPRESSOR [Concomitant]
     Active Substance: METOPROLOL TARTRATE
  14. Zofran-ODT [Concomitant]
  15. ZOFRAN [Concomitant]
     Active Substance: ONDANSETRON HYDROCHLORIDE
  16. PROTONIX [Concomitant]
     Active Substance: PANTOPRAZOLE SODIUM
  17. PRAVACHOL [Concomitant]
     Active Substance: PRAVASTATIN SODIUM
  18. DELTASONE [Concomitant]
     Active Substance: PREDNISONE
  19. CARAFATE [Concomitant]
     Active Substance: SUCRALFATE
  20. TYENNE [Concomitant]
     Active Substance: TOCILIZUMAB-AAZG
  21. VERAPAMIL [Concomitant]
     Active Substance: VERAPAMIL HYDROCHLORIDE

REACTIONS (1)
  - Diarrhoea [Unknown]

NARRATIVE: CASE EVENT DATE: 20160830
